FAERS Safety Report 13735448 (Version 1)
Quarter: 2017Q3

REPORT INFORMATION
  Report Type: Spontaneous
  Country: US (occurrence: US)
  Receive Date: 20170707
  Receipt Date: 20170707
  Transmission Date: 20171127
  Serious: Yes (Disabling, Other)
  Sender: FDA-Public Use
  Company Number: None

PATIENT
  Age: 49 Year
  Sex: Female
  Weight: 52.2 kg

DRUGS (4)
  1. ZANAFLEX GENERIC [Suspect]
     Active Substance: TIZANIDINE HYDROCHLORIDE
     Indication: MYALGIA
     Dosage: ?          OTHER STRENGTH:MG;QUANTITY:100 TABLET(S);?
     Route: 048
     Dates: start: 20170703, end: 20170703
  2. ZANAFLEX GENERIC [Suspect]
     Active Substance: TIZANIDINE HYDROCHLORIDE
     Indication: NEURALGIA
     Dosage: ?          OTHER STRENGTH:MG;QUANTITY:100 TABLET(S);?
     Route: 048
     Dates: start: 20170703, end: 20170703
  3. ZANAFLEX GENERIC [Suspect]
     Active Substance: TIZANIDINE HYDROCHLORIDE
     Indication: MUSCLE SPASMS
     Dosage: ?          OTHER STRENGTH:MG;QUANTITY:100 TABLET(S);?
     Route: 048
     Dates: start: 20170703, end: 20170703
  4. ZANAFLEX GENERIC [Suspect]
     Active Substance: TIZANIDINE HYDROCHLORIDE
     Indication: NEUROPATHY PERIPHERAL
     Dosage: ?          OTHER STRENGTH:MG;QUANTITY:100 TABLET(S);?
     Route: 048
     Dates: start: 20170703, end: 20170703

REACTIONS (3)
  - Emotional distress [None]
  - Dehydration [None]
  - Poor quality drug administered [None]

NARRATIVE: CASE EVENT DATE: 20170703
